FAERS Safety Report 4514977-7 (Version None)
Quarter: 2004Q4

REPORT INFORMATION
  Report Type: 
  Country: None (occurrence: None)
  Receive Date: 20041129
  Receipt Date: 20041129
  Transmission Date: 20050328
  Serious: No
  Sender: FDA-Public Use
  Company Number: None

PATIENT
  Age: 33 Year
  Sex: Female

DRUGS (2)
  1. LAMICTAL [Suspect]
     Indication: BIPOLAR II DISORDER
     Dosage: 25 MG AT HS
     Dates: start: 20041110, end: 20041117
  2. LAMICTAL [Suspect]
     Indication: DEPRESSION
     Dosage: 25 MG AT HS
     Dates: start: 20041110, end: 20041117

REACTIONS (4)
  - ANXIETY [None]
  - CHEILITIS [None]
  - CHEST DISCOMFORT [None]
  - THROAT TIGHTNESS [None]
